FAERS Safety Report 9305041 (Version 2)
Quarter: 2013Q2

REPORT INFORMATION
  Report Type: Spontaneous
  Country: US (occurrence: US)
  Receive Date: 20130523
  Receipt Date: 20130620
  Transmission Date: 20140414
  Serious: Yes (Other)
  Sender: FDA-Public Use
  Company Number: US-009507513-1305USA010496

PATIENT
  Sex: 0

DRUGS (4)
  1. TEMODAR [Suspect]
     Indication: MEDULLOBLASTOMA RECURRENT
  2. BEVACIZUMAB [Suspect]
     Indication: MEDULLOBLASTOMA RECURRENT
  3. IRINOTECAN HYDROCHLORIDE [Suspect]
     Indication: MEDULLOBLASTOMA RECURRENT
  4. VINCRISTINE SULFATE [Concomitant]

REACTIONS (1)
  - Convulsion [Unknown]
